FAERS Safety Report 9711600 (Version 1)
Quarter: 2013Q4

REPORT INFORMATION
  Report Type: Spontaneous
  Country: US (occurrence: US)
  Receive Date: 20131126
  Receipt Date: 20131126
  Transmission Date: 20140711
  Serious: No
  Sender: FDA-Public Use
  Company Number: US-BRISTOL-MYERS SQUIBB COMPANY-18777128

PATIENT
  Age: 57 Year
  Sex: Male
  Weight: 136.05 kg

DRUGS (6)
  1. BYDUREON [Suspect]
     Dosage: NO OF INJ:2
     Dates: start: 20130402
  2. METFORMIN [Concomitant]
  3. LEVEMIR [Concomitant]
  4. INSULIN [Concomitant]
  5. HUMALOG [Concomitant]
  6. HUMALOG [Concomitant]

REACTIONS (2)
  - Injection site nodule [Not Recovered/Not Resolved]
  - Injection site pruritus [Not Recovered/Not Resolved]
